FAERS Safety Report 22856327 (Version 2)
Quarter: 2023Q4

REPORT INFORMATION
  Report Type: Report from Study
  Country: US (occurrence: US)
  Receive Date: 20230823
  Receipt Date: 20231018
  Transmission Date: 20240110
  Serious: No
  Sender: FDA-Public Use
  Company Number: US-002147023-NVSC2023US181457

PATIENT
  Sex: Female
  Weight: 76.644 kg

DRUGS (2)
  1. COSENTYX [Suspect]
     Active Substance: SECUKINUMAB
     Indication: Psoriasis
     Dosage: UNK
     Route: 065
     Dates: start: 202204
  2. CLOBETASOL [Suspect]
     Active Substance: CLOBETASOL
     Indication: Psoriasis
     Dosage: UNK
     Route: 065

REACTIONS (8)
  - Psoriasis [Unknown]
  - Condition aggravated [Unknown]
  - Pruritus [Unknown]
  - Skin plaque [Unknown]
  - Rash erythematous [Unknown]
  - Arthritis [Unknown]
  - Product use issue [Unknown]
  - Therapeutic response decreased [Unknown]
